FAERS Safety Report 24178597 (Version 2)
Quarter: 2024Q3

REPORT INFORMATION
  Report Type: Spontaneous
  Country: JP (occurrence: JP)
  Receive Date: 20240806
  Receipt Date: 20240827
  Transmission Date: 20241017
  Serious: Yes (Hospitalization)
  Sender: BAUSCH AND LOMB
  Company Number: JP-BAUSCH-BL-2024-011884

PATIENT
  Age: 76 Year
  Sex: Male

DRUGS (1)
  1. BRODALUMAB [Suspect]
     Active Substance: BRODALUMAB
     Indication: Psoriasis
     Dosage: 1X/2 WEEKS
     Route: 058
     Dates: start: 201902

REACTIONS (2)
  - Generalised oedema [Unknown]
  - Inappropriate schedule of product administration [Unknown]
